FAERS Safety Report 14070287 (Version 1)
Quarter: 2017Q4

REPORT INFORMATION
  Report Type: Spontaneous
  Country: CH (occurrence: CH)
  Receive Date: 20171010
  Receipt Date: 20171010
  Transmission Date: 20180321
  Serious: Yes (Hospitalization)
  Sender: FDA-Public Use
  Company Number: CH-TEVA-812170ISR

PATIENT
  Age: 64 Year
  Sex: Male

DRUGS (1)
  1. ENALAPRIL-MEPHA [Suspect]
     Active Substance: ENALAPRIL
     Route: 048

REACTIONS (4)
  - Asthenia [Recovered/Resolved]
  - Gait disturbance [Recovered/Resolved]
  - Drug administration error [Recovered/Resolved]
  - Vertigo [Recovered/Resolved]

NARRATIVE: CASE EVENT DATE: 201708
